FAERS Safety Report 5122030-7 (Version None)
Quarter: 2006Q4

REPORT INFORMATION
  Report Type: 
  Country: None (occurrence: None)
  Receive Date: 20061006
  Receipt Date: 20060922
  Transmission Date: 20070319
  Serious: Yes (Hospitalization)
  Sender: FDA-Public Use
  Company Number: US-JNJFOC-20060601387

PATIENT
  Sex: Female
  Weight: 80.4 kg

DRUGS (1)
  1. ORTHO EVRA [Suspect]
     Indication: CONTRACEPTION
     Route: 062

REACTIONS (6)
  - ASPARTATE AMINOTRANSFERASE INCREASED [None]
  - COAGULATION FACTOR VIII LEVEL INCREASED [None]
  - COAGULATION FACTOR XII LEVEL INCREASED [None]
  - CORONARY ARTERY THROMBOSIS [None]
  - MYOCARDIAL INFARCTION [None]
  - SINUS TACHYCARDIA [None]
